FAERS Safety Report 19462598 (Version 1)
Quarter: 2021Q2

REPORT INFORMATION
  Report Type: Spontaneous
  Country: CL (occurrence: CL)
  Receive Date: 20210625
  Receipt Date: 20210625
  Transmission Date: 20210717
  Serious: Yes (Death)
  Sender: FDA-Public Use
  Company Number: CL-ALLERGAN-2123854US

PATIENT

DRUGS (1)
  1. CEFTAZIDIME;AVIBACTAM ? BP [Suspect]
     Active Substance: AVIBACTAM SODIUM\CEFTAZIDIME
     Indication: BACTERAEMIA
     Dosage: UNK

REACTIONS (2)
  - Drug ineffective [Fatal]
  - Procalcitonin abnormal [Fatal]
